FAERS Safety Report 8242724-4 (Version None)
Quarter: 2012Q1

REPORT INFORMATION
  Report Type: 
  Country: None (occurrence: None)
  Receive Date: 20120329
  Receipt Date: 20120321
  Transmission Date: 20120608
  Serious: Yes (Hospitalization, Other)
  Sender: FDA-Public Use
  Company Number: US-BAYER-2011-107062

PATIENT
  Age: 27 Year
  Sex: Female
  Weight: 58.957 kg

DRUGS (4)
  1. ACIPHEX [Concomitant]
  2. DROSPIRENONE AND ETHINYL ESTRADIOL [Suspect]
     Indication: ACNE
     Dosage: UNK
     Dates: start: 20080920, end: 20081201
  3. YASMIN [Suspect]
     Indication: ACNE
     Dosage: UNK
     Dates: start: 20080218, end: 20101116
  4. DROSPIRENONE AND ETHINYL ESTRADIOL [Suspect]
     Dosage: UNK
     Dates: start: 20100325, end: 20100401

REACTIONS (5)
  - CHOLECYSTITIS [None]
  - CHOLELITHIASIS [None]
  - CHEST PAIN [None]
  - ATELECTASIS [None]
  - ABDOMINAL PAIN UPPER [None]
